FAERS Safety Report 22398673 (Version 2)
Quarter: 2023Q2

REPORT INFORMATION
  Report Type: Spontaneous
  Country: TR (occurrence: TR)
  Receive Date: 20230602
  Receipt Date: 20230613
  Transmission Date: 20230721
  Serious: Yes (Other)
  Sender: FDA-Public Use
  Company Number: TR-ALNYLAM PHARMACEUTICALS, INC.-ALN-2023-002509

PATIENT

DRUGS (6)
  1. OXLUMO [Suspect]
     Active Substance: LUMASIRAN
     Indication: Primary hyperoxaluria
     Dosage: 81 MILLIGRAM, MONTHLY
     Route: 058
     Dates: start: 20230119, end: 20230320
  2. VITAMIN B6 [Concomitant]
     Active Substance: PYRIDOXINE HYDROCHLORIDE
     Indication: Product used for unknown indication
     Dosage: UNK 1 MG/KG (1X20 MG)
     Route: 065
     Dates: start: 2018
  3. VITAMIN B6 [Concomitant]
     Active Substance: PYRIDOXINE HYDROCHLORIDE
     Dosage: UNK 3 MG/KG (2X40 MG)
     Route: 065
  4. ALLOPURINOL [Concomitant]
     Active Substance: ALLOPURINOL
     Indication: Blood uric acid increased
     Dosage: UNK 1X150 MG (7.5 MG/KG/DAY)
     Route: 065
     Dates: start: 202105
  5. ENALAPRIL [Concomitant]
     Active Substance: ENALAPRIL
     Indication: Proteinuria
     Dosage: UNK, 1.25 MGR (0.1GR/KG/DAY)
     Route: 065
     Dates: start: 202105
  6. ENALAPRIL [Concomitant]
     Active Substance: ENALAPRIL
     Dosage: UNK,0.2 MGR (2X 2.5 MG)
     Route: 065

REACTIONS (2)
  - Therapy interrupted [Unknown]
  - Product availability issue [Unknown]

NARRATIVE: CASE EVENT DATE: 20230420
